FAERS Safety Report 16646330 (Version 2)
Quarter: 2020Q2

REPORT INFORMATION
  Report Type: Report from Study
  Country: None (occurrence: CA)
  Receive Date: 20190730
  Receipt Date: 20200506
  Transmission Date: 20200713
  Serious: Yes (Hospitalization)
  Sender: FDA-Public Use
  Company Number: CA-ABBVIE-19K-028-2872011-00

PATIENT
  Sex: Female

DRUGS (1)
  1. HUMIRA [Suspect]
     Active Substance: ADALIMUMAB
     Indication: CROHN^S DISEASE
     Route: 058
     Dates: end: 20190618

REACTIONS (2)
  - Intracranial aneurysm [Unknown]
  - Amnesia [Unknown]

NARRATIVE: CASE EVENT DATE: 2019
